FAERS Safety Report 9371982 (Version 3)
Quarter: 2013Q3

REPORT INFORMATION
  Report Type: Spontaneous
  Country: JP (occurrence: JP)
  Receive Date: 20130627
  Receipt Date: 20130712
  Transmission Date: 20140515
  Serious: Yes (Hospitalization, Other)
  Sender: FDA-Public Use
  Company Number: JP-BAYER-2013-076527

PATIENT
  Age: 65 Year
  Sex: Male

DRUGS (2)
  1. NEXAVAR [Suspect]
     Indication: METASTATIC RENAL CELL CARCINOMA
     Dosage: DAILY DOSE 200 MG
     Route: 048
     Dates: start: 20120127
  2. NEXAVAR [Suspect]
     Indication: METASTASES TO LYMPH NODES

REACTIONS (6)
  - Metastases to lung [None]
  - Bronchial obstruction [None]
  - Respiratory disorder [None]
  - Atelectasis [None]
  - Blood pressure increased [None]
  - Anaemia [None]
